FAERS Safety Report 24607593 (Version 1)
Quarter: 2024Q4

REPORT INFORMATION
  Report Type: Other
  Country: GB (occurrence: GB)
  Receive Date: 20241112
  Receipt Date: 20241112
  Transmission Date: 20250115
  Serious: Yes (Other)
  Sender: MACLEODS
  Company Number: None

PATIENT

DRUGS (2)
  1. TAMSULOSIN [Suspect]
     Active Substance: TAMSULOSIN
     Indication: Urinary tract disorder
     Dosage: 400MG MR
     Route: 065
     Dates: start: 20240715, end: 20241029
  2. TAMSULOSIN [Suspect]
     Active Substance: TAMSULOSIN
     Dosage: 400MICROGRAM MODIFIED-RELEASE CAPSULES
     Route: 065
     Dates: start: 20241029

REACTIONS (3)
  - Swollen tongue [Recovered/Resolved]
  - Pharyngeal swelling [Recovered/Resolved]
  - Pharyngeal swelling [Recovered/Resolved]

NARRATIVE: CASE EVENT DATE: 20241025
